FAERS Safety Report 10058506 (Version 1)
Quarter: 2014Q2

REPORT INFORMATION
  Report Type: Spontaneous
  Country: US (occurrence: US)
  Receive Date: 20140404
  Receipt Date: 20140404
  Transmission Date: 20141212
  Serious: Yes (Hospitalization)
  Sender: FDA-Public Use
  Company Number: US-BAYER-2014-049030

PATIENT
  Age: 38 Year
  Sex: Female
  Weight: 70.3 kg

DRUGS (19)
  1. YAZ [Suspect]
  2. YASMIN [Suspect]
  3. IBUPROFEN [Concomitant]
     Dosage: UNK
     Dates: start: 20070213
  4. ZITHROMAX [Concomitant]
     Dosage: UNK
     Dates: start: 20070213
  5. PROCHLORPERAZINE MALEATE [Concomitant]
     Indication: NAUSEA
     Dosage: 10 MG, 3 TO 4 TIMES DAILY
     Dates: start: 20070313
  6. PROCHLORPERAZINE MALEATE [Concomitant]
     Indication: VOMITING
  7. FLUCONAZOLE [Concomitant]
     Indication: FUNGAL INFECTION
     Dosage: 150 MG,ONE TABLET NOW
     Dates: start: 20070313
  8. ALBUTEROL [Concomitant]
     Indication: DYSPNOEA
     Dosage: 8.5 G, 2 INHALATIONS EVERY 4 TO 6 HOURS AS NEEDED
     Dates: start: 20070313
  9. BECLOMETHASONE [Concomitant]
     Dosage: 7.3 G,ONE INHALATION TWICE DAILY
     Dates: start: 20070313
  10. HYDROCODONE/ACETAMINOPHEN [Concomitant]
     Indication: PAIN
     Dosage: 5-500 MG OR 7.5-500, 1 OR 2 EVERY 4 TO 6 HOURS AS NEEDED
     Dates: start: 20070313
  11. LACTOBACILLUS ACIDOPHILUS [Concomitant]
     Dosage: TWICE DAILY
     Dates: start: 20070313
  12. CEFUROXIME [Concomitant]
     Dosage: 500 MG, BID
  13. AZITHROMYCIN [Concomitant]
     Dosage: 250 MG, UNK
     Dates: start: 20070313
  14. INDOCIN [Concomitant]
     Indication: PAIN
     Dosage: 25 MG,TWICE DAILY INTERMITTENT USE
     Dates: start: 20070313
  15. VICODIN [Concomitant]
     Indication: CHEST PAIN
     Dosage: AS NEEDED
     Dates: start: 20070213, end: 20070315
  16. MOXIFLOXACIN [Concomitant]
     Dosage: 400 MG, QD
     Dates: start: 20070315
  17. TRAZODONE [Concomitant]
     Indication: INSOMNIA
     Dosage: 50-100 MG PRN QHS (EVERY NIGHT) (AS NEEDED)
     Dates: start: 20070315
  18. ROCEPHIN [Concomitant]
  19. Z-PAK [Concomitant]

REACTIONS (1)
  - Pulmonary embolism [None]
